FAERS Safety Report 6223227-5 (Version None)
Quarter: 2009Q2

REPORT INFORMATION
  Report Type: 
  Country: None (occurrence: None)
  Receive Date: 20090611
  Receipt Date: 20090608
  Transmission Date: 20091009
  Serious: Yes (Death, Life-Threatening, Hospitalization)
  Sender: FDA-Public Use
  Company Number: JP-B.I. PHARMACEUTICALS,INC./RIDGEFIELD-2009-BP-00161NB

PATIENT
  Sex: Male
  Weight: 67 kg

DRUGS (7)
  1. BI-SIFROL TABLETS [Suspect]
     Indication: PARKINSONISM
     Dosage: 1.5MG
     Route: 048
     Dates: end: 20081218
  2. MADOPAR [Suspect]
     Indication: PARKINSONISM
     Dosage: 2ANZ
     Route: 048
     Dates: end: 20081218
  3. SYMMETREL [Suspect]
     Indication: PARKINSONISM
     Dosage: 50MG
     Route: 048
     Dates: end: 20081211
  4. NORVASC [Concomitant]
     Dosage: 5MG
     Route: 048
  5. BLOPRESS [Concomitant]
     Dosage: 4MG
     Route: 048
  6. SUPACAL [Concomitant]
     Dosage: 120MG
     Route: 048
  7. URSO 250 [Concomitant]
     Dosage: 300MG
     Route: 048

REACTIONS (5)
  - ACUTE RESPIRATORY DISTRESS SYNDROME [None]
  - CHOLELITHIASIS [None]
  - NEUROLEPTIC MALIGNANT SYNDROME [None]
  - PNEUMONIA [None]
  - SEPSIS [None]
